FAERS Safety Report 19623370 (Version 1)
Quarter: 2021Q3

REPORT INFORMATION
  Report Type: Spontaneous
  Country: US (occurrence: US)
  Receive Date: 20210729
  Receipt Date: 20210729
  Transmission Date: 20211014
  Serious: No
  Sender: FDA-Public Use
  Company Number: US-ASTRAZENECA-2021A578403

PATIENT
  Age: 39 Year
  Sex: Male

DRUGS (1)
  1. FARXIGA [Suspect]
     Active Substance: DAPAGLIFLOZIN PROPANEDIOL
     Indication: CARDIOMYOPATHY
     Route: 048

REACTIONS (4)
  - Penile pain [Unknown]
  - Erythema [Unknown]
  - Pain [Unknown]
  - Swelling [Unknown]
